FAERS Safety Report 5269364-3 (Version None)
Quarter: 2007Q1

REPORT INFORMATION
  Report Type: 
  Country: None (occurrence: None)
  Receive Date: 20070319
  Receipt Date: 20070308
  Transmission Date: 20070707
  Serious: Yes (Other)
  Sender: FDA-Public Use
  Company Number: US-PFIZER INC-2007018902

PATIENT
  Age: 89 Year
  Sex: Female

DRUGS (2)
  1. LYRICA [Suspect]
  2. HYDROCODONE [Concomitant]

REACTIONS (1)
  - DEMENTIA [None]
